FAERS Safety Report 11282231 (Version 2)
Quarter: 2015Q4

REPORT INFORMATION
  Report Type: Report from Study
  Country: BR (occurrence: BR)
  Receive Date: 20150720
  Receipt Date: 20151222
  Transmission Date: 20160304
  Serious: Yes (Other)
  Sender: FDA-Public Use
  Company Number: BR-ROCHE-1608253

PATIENT
  Age: 53 Year
  Sex: Female
  Weight: 42 kg

DRUGS (6)
  1. LABIRIN [Concomitant]
     Active Substance: BETAHISTINE
     Dosage: DAILY
     Route: 065
  2. OMEPRAZOL [Concomitant]
     Active Substance: OMEPRAZOLE
     Dosage: IN THE MORNING AND AT NIGHT
     Route: 065
  3. MABTHERA [Suspect]
     Active Substance: RITUXIMAB
     Indication: RHEUMATOID ARTHRITIS
     Route: 042
     Dates: start: 20140509
  4. VIMOVO [Suspect]
     Active Substance: ESOMEPRAZOLE MAGNESIUM\NAPROXEN
     Indication: INFLAMMATION
     Dosage: DAILY
     Route: 065
  5. VIVACOR (BRAZIL) [Concomitant]
  6. METICORTEN [Concomitant]
     Active Substance: PREDNISONE
     Dosage: DAILY
     Route: 065

REACTIONS (6)
  - Feeling abnormal [Unknown]
  - Sinusitis [Unknown]
  - Body height decreased [Unknown]
  - Catarrh [Unknown]
  - Formication [Unknown]
  - Dysuria [Unknown]

NARRATIVE: CASE EVENT DATE: 201504
